FAERS Safety Report 6955382-3 (Version None)
Quarter: 2010Q3

REPORT INFORMATION
  Report Type: 
  Country: None (occurrence: None)
  Receive Date: 20100830
  Receipt Date: 20100505
  Transmission Date: 20110219
  Serious: No
  Sender: FDA-Public Use
  Company Number: US-MYLANLABS-2010S1008070

PATIENT
  Age: 81 Year
  Sex: Female

DRUGS (6)
  1. LISINOPRIL [Suspect]
     Indication: BLOOD PRESSURE
  2. FUROSEMIDE [Concomitant]
  3. MINOXIDIL [Concomitant]
  4. CATAPRES [Concomitant]
  5. DILTIAZEM [Concomitant]
  6. ACIPHEX [Concomitant]

REACTIONS (2)
  - COUGH [None]
  - GASTROOESOPHAGEAL REFLUX DISEASE [None]
